FAERS Safety Report 21280435 (Version 1)
Quarter: 2022Q3

REPORT INFORMATION
  Report Type: Other
  Country: US (occurrence: None)
  Receive Date: 20220901
  Receipt Date: 20220901
  Transmission Date: 20221027
  Serious: Yes (Hospitalization)
  Sender: FDA-Public Use
  Company Number: US-ROCHE-3166809

PATIENT
  Age: 42 Year
  Sex: Female
  Weight: 127.12 kg

DRUGS (5)
  1. OCREVUS [Suspect]
     Active Substance: OCRELIZUMAB
     Indication: Relapsing-remitting multiple sclerosis
     Dosage: YES, INFUSE 300MG DAY 1; THEN 300MG DAY 15, THEN INFUSE 600MG Q 6 MONTHS
     Route: 042
     Dates: start: 2020
  2. ALLEGRA [Concomitant]
     Active Substance: FEXOFENADINE HYDROCHLORIDE
  3. FLUNISOLIDE [Concomitant]
     Active Substance: FLUNISOLIDE
  4. CITALOPRAM [Concomitant]
     Active Substance: CITALOPRAM HYDROBROMIDE
  5. OMEPRAZOLE [Concomitant]
     Active Substance: OMEPRAZOLE

REACTIONS (5)
  - COVID-19 [Recovered/Resolved with Sequelae]
  - Oxygen saturation decreased [Recovered/Resolved]
  - Fatigue [Recovered/Resolved]
  - Feeling abnormal [Recovered/Resolved]
  - Pyrexia [Recovered/Resolved]

NARRATIVE: CASE EVENT DATE: 20210814
